FAERS Safety Report 6656271-4 (Version None)
Quarter: 2010Q1

REPORT INFORMATION
  Report Type: 
  Country: None (occurrence: None)
  Receive Date: 20100326
  Receipt Date: 20100326
  Transmission Date: 20100710
  Serious: Yes (Life-Threatening, Other)
  Sender: FDA-Public Use
  Company Number: None

PATIENT
  Age: 26 Year
  Sex: Male
  Weight: 81.6475 kg

DRUGS (2)
  1. LAMICTAL [Suspect]
     Indication: BIPOLAR DISORDER
     Dosage: 100MG DAILY PO
     Route: 048
     Dates: start: 20100215, end: 20100315
  2. LAMICTAL CD [Suspect]
     Dosage: 50MG DAILY PO
     Route: 048
     Dates: start: 20100316, end: 20100320

REACTIONS (9)
  - ALOPECIA [None]
  - ARTHRALGIA [None]
  - COGNITIVE DISORDER [None]
  - CONVULSION [None]
  - DIZZINESS [None]
  - HEADACHE [None]
  - PRODUCT LABEL ISSUE [None]
  - SUICIDAL IDEATION [None]
  - UNEVALUABLE EVENT [None]
